FAERS Safety Report 6616452-2 (Version None)
Quarter: 2010Q1

REPORT INFORMATION
  Report Type: 
  Country: None (occurrence: None)
  Receive Date: 20100305
  Receipt Date: 20100223
  Transmission Date: 20100710
  Serious: Yes (Hospitalization)
  Sender: FDA-Public Use
  Company Number: US-PURDUE-USA-2010-0042404

PATIENT
  Age: 62 Year
  Sex: Male

DRUGS (15)
  1. DILAUDID [Suspect]
     Indication: CANCER PAIN
     Dosage: 40 MG, DAILY
     Route: 048
  2. IMC-1121B (ANTI-VEGFR2 MAB) [Suspect]
     Indication: PROSTATE CANCER METASTATIC
  3. IMC-A12 (ANTI IGF-IR MAB) [Suspect]
     Indication: PROSTATE CANCER METASTATIC
  4. MITOXANTRONE [Suspect]
     Indication: PROSTATE CANCER METASTATIC
  5. PREDNISONE [Suspect]
     Indication: PROSTATE CANCER METASTATIC
  6. FENTANYL [Suspect]
     Indication: CANCER PAIN
     Dosage: 50 MCG, Q72H
     Route: 062
     Dates: end: 20090501
  7. FENTANYL [Suspect]
     Dosage: 75 UNK, UNK
     Route: 062
     Dates: start: 20090529
  8. ALPRAZOLAM [Suspect]
     Indication: SLEEP DISORDER
     Dosage: 0.50 MG, HS
  9. ALPRAZOLAM [Suspect]
     Indication: ANXIETY
  10. GABAPENTIN [Concomitant]
     Indication: DRUG USE FOR UNKNOWN INDICATION
     Dosage: 300 MG, DAILY
  11. DOCUSATE [Concomitant]
     Indication: DRUG USE FOR UNKNOWN INDICATION
     Dosage: 100 MG, DAILY
  12. SENNA ALEXANDRINA [Concomitant]
  13. CALCIUM [Concomitant]
     Indication: DRUG USE FOR UNKNOWN INDICATION
  14. M.V.I. [Concomitant]
     Indication: DRUG USE FOR UNKNOWN INDICATION
  15. PREDNISONE [Concomitant]
     Indication: DRUG USE FOR UNKNOWN INDICATION

REACTIONS (7)
  - BLOOD CREATINE PHOSPHOKINASE INCREASED [None]
  - DEPRESSED LEVEL OF CONSCIOUSNESS [None]
  - HAEMATOCRIT DECREASED [None]
  - HAEMOGLOBIN DECREASED [None]
  - LIVER FUNCTION TEST ABNORMAL [None]
  - PAIN [None]
  - PLATELET COUNT DECREASED [None]
